FAERS Safety Report 8913012 (Version 1)
Quarter: 2012Q4

REPORT INFORMATION
  Report Type: Spontaneous
  Country: US (occurrence: None)
  Receive Date: 20121114
  Receipt Date: 20121114
  Transmission Date: 20130627
  Serious: Yes (Other)
  Sender: FDA-Public Use
  Company Number: None

PATIENT
  Age: 62 Year
  Sex: Female
  Weight: 68.04 kg

DRUGS (2)
  1. GABAPENTIN [Suspect]
     Indication: POSTOPERATIVE PAIN
     Dosage: 600 mg 3 x/day po
     Route: 048
     Dates: start: 20120901, end: 20121110
  2. GABAPENTIN [Suspect]
     Indication: NERVE PAIN
     Dosage: 600 mg 3 x/day po
     Route: 048
     Dates: start: 20120901, end: 20121110

REACTIONS (2)
  - Drug effect decreased [None]
  - Product quality issue [None]
